FAERS Safety Report 4719227-4 (Version None)
Quarter: 2005Q3

REPORT INFORMATION
  Report Type: 
  Country: None (occurrence: None)
  Receive Date: 20050718
  Receipt Date: 20050718
  Transmission Date: 20060218
  Serious: Yes (Life-Threatening)
  Sender: FDA-Public Use
  Company Number: None

PATIENT
  Age: 48 Year
  Sex: Male
  Weight: 105 kg

DRUGS (1)
  1. DEXTRAN 40 10% IN DEXTROSE 5% [Suspect]
     Indication: VASCULAR OPERATION
     Dosage: 40% ONE TIME INTRAVENOUS
     Route: 042
     Dates: start: 20050516, end: 20050516

REACTIONS (6)
  - BRADYCARDIA [None]
  - CARBON DIOXIDE DECREASED [None]
  - CARDIO-RESPIRATORY ARREST [None]
  - ELECTROCARDIOGRAM QRS COMPLEX PROLONGED [None]
  - POST PROCEDURAL COMPLICATION [None]
  - VENTRICULAR FIBRILLATION [None]
